FAERS Safety Report 8337677-4 (Version None)
Quarter: 2012Q2

REPORT INFORMATION
  Report Type: 
  Country: None (occurrence: None)
  Receive Date: 20120504
  Receipt Date: 20120504
  Transmission Date: 20120825
  Serious: Yes (Other)
  Sender: FDA-Public Use
  Company Number: None

PATIENT
  Age: 23 Year
  Sex: Female
  Weight: 147.41 kg

DRUGS (1)
  1. MONISTAT 7 [Suspect]
     Indication: VULVOVAGINAL MYCOTIC INFECTION
     Dosage: |DOSAGETEXT: 1 APPLICATION||STRENGTH: 100 MG||FREQ: AT BEDTIME||ROUTE: VAGINAL|
     Route: 067
     Dates: start: 20111026, end: 20111102

REACTIONS (2)
  - BURNING SENSATION [None]
  - PRURITUS [None]
